FAERS Safety Report 18470184 (Version 1)
Quarter: 2020Q4

REPORT INFORMATION
  Report Type: Spontaneous
  Country: JP (occurrence: JP)
  Receive Date: 20201105
  Receipt Date: 20201105
  Transmission Date: 20210114
  Serious: Yes (Other)
  Sender: FDA-Public Use
  Company Number: JP-JAZZ-2020-JP-014308

PATIENT
  Age: 62 Year
  Sex: Female

DRUGS (1)
  1. DEFITELIO [Suspect]
     Active Substance: DEFIBROTIDE SODIUM
     Indication: VENOOCCLUSIVE LIVER DISEASE
     Dosage: 25 MG/KG/ 24 HOURS
     Route: 042
     Dates: start: 20200707, end: 20200716

REACTIONS (2)
  - Multiple organ dysfunction syndrome [Unknown]
  - Haemothorax [Recovered/Resolved]

NARRATIVE: CASE EVENT DATE: 20200716
